FAERS Safety Report 4966424-9 (Version None)
Quarter: 2006Q2

REPORT INFORMATION
  Report Type: 
  Country: None (occurrence: None)
  Receive Date: 20060407
  Receipt Date: 20030529
  Transmission Date: 20061013
  Serious: Yes (Hospitalization)
  Sender: FDA-Public Use
  Company Number: PL-ROCHE-339040

PATIENT
  Age: 72 Year
  Sex: Female
  Weight: 62 kg

DRUGS (6)
  1. BONIVA [Suspect]
     Indication: OSTEOPOROSIS POSTMENOPAUSAL
     Route: 042
     Dates: start: 20021125, end: 20030220
  2. PLACEBO [Suspect]
     Indication: OSTEOPOROSIS POSTMENOPAUSAL
     Route: 048
     Dates: start: 20021125, end: 20030428
  3. CAPTOPRIL [Concomitant]
     Dates: start: 19991220
  4. OMEPRAZOLE [Concomitant]
     Dates: start: 20020919
  5. TRIMIPRAMINE MALEATE [Concomitant]
     Dates: start: 20020919
  6. METOCLOPRAMIDE [Concomitant]
     Dates: start: 20020919

REACTIONS (1)
  - GASTRITIS [None]
